FAERS Safety Report 8488825-7 (Version None)
Quarter: 2012Q3

REPORT INFORMATION
  Report Type: 
  Country: None (occurrence: None)
  Receive Date: 20120705
  Receipt Date: 20120625
  Transmission Date: 20120928
  Serious: Yes (Other)
  Sender: FDA-Public Use
  Company Number: US-NOVOPROD-354591

PATIENT
  Age: 76 Year
  Sex: Female

DRUGS (2)
  1. NOVOLOG [Suspect]
     Indication: TYPE 2 DIABETES MELLITUS
     Dosage: UNKNOWN
     Route: 058
  2. LANTUS [Suspect]
     Indication: TYPE 2 DIABETES MELLITUS
     Dosage: 80 U, QD
     Route: 058

REACTIONS (7)
  - BLOOD GLUCOSE INCREASED [None]
  - WEIGHT INCREASED [None]
  - DRUG INEFFECTIVE [None]
  - CORONARY ARTERIAL STENT INSERTION [None]
  - GLYCOSYLATED HAEMOGLOBIN INCREASED [None]
  - CATARACT OPERATION [None]
  - THYROID DISORDER [None]
